FAERS Safety Report 7408674-8 (Version None)
Quarter: 2011Q2

REPORT INFORMATION
  Report Type: 
  Country: None (occurrence: None)
  Receive Date: 20110404
  Receipt Date: 20110328
  Transmission Date: 20111010
  Serious: Yes (Death, Disabling, Other)
  Sender: FDA-Public Use
  Company Number: ALA_02265_2011

PATIENT
  Sex: Male

DRUGS (3)
  1. REGLAN [Suspect]
     Indication: IMPAIRED GASTRIC EMPTYING
     Dosage: (DF ORAL)
     Route: 048
     Dates: start: 20081101, end: 20090326
  2. REGLAN [Suspect]
     Indication: ABDOMINAL DISTENSION
     Dosage: (DF ORAL)
     Route: 048
     Dates: start: 20081101, end: 20090326
  3. REGLAN [Suspect]
     Indication: DYSPEPSIA
     Dosage: (DF ORAL)
     Route: 048
     Dates: start: 20081101, end: 20090326

REACTIONS (7)
  - ECONOMIC PROBLEM [None]
  - NERVOUS SYSTEM DISORDER [None]
  - PAIN [None]
  - AKATHISIA [None]
  - MULTIPLE INJURIES [None]
  - TARDIVE DYSKINESIA [None]
  - EXTRAPYRAMIDAL DISORDER [None]
